FAERS Safety Report 13353346 (Version 1)
Quarter: 2017Q1

REPORT INFORMATION
  Report Type: Spontaneous
  Country: US (occurrence: US)
  Receive Date: 20170317
  Receipt Date: 20170317
  Transmission Date: 20170429
  Serious: No
  Sender: FDA-Public Use
  Company Number: None

PATIENT
  Age: 70 Year
  Sex: Female

DRUGS (2)
  1. PREDNISONE10MG TAB [Suspect]
     Active Substance: PREDNISONE
     Route: 048
     Dates: start: 20161206
  2. BENAZEPRIL [Suspect]
     Active Substance: BENAZEPRIL HYDROCHLORIDE
     Indication: HYPERTENSION
     Route: 048
     Dates: start: 20160907

REACTIONS (1)
  - Product commingling [None]

NARRATIVE: CASE EVENT DATE: 20160907
